FAERS Safety Report 9025014 (Version 2)
Quarter: 2013Q1

REPORT INFORMATION
  Report Type: Spontaneous
  Country: BR (occurrence: BR)
  Receive Date: 20130121
  Receipt Date: 20130122
  Transmission Date: 20140127
  Serious: Yes (Hospitalization, Other)
  Sender: FDA-Public Use
  Company Number: PHHY2013BR004791

PATIENT
  Age: 89 None
  Sex: Female

DRUGS (6)
  1. DIOVAN [Suspect]
     Indication: HYPERTENSION
     Dosage: 160 MG, DAILY
     Route: 048
  2. DIOVAN [Suspect]
     Dosage: 160 MG, Q12H
  3. DIOSMIN [Concomitant]
     Indication: VARICOSE VEIN
     Dosage: 1 DF, DAILY
  4. NATRILIX [Concomitant]
     Indication: BLOOD PRESSURE
     Dosage: 1 DF, DAILY
  5. AAS [Concomitant]
     Indication: BLOOD PRESSURE
     Dosage: 1 DF, DAILY
  6. AAS [Concomitant]
     Dosage: 2 DF AFTER LUNCH

REACTIONS (7)
  - Pulmonary sepsis [Recovering/Resolving]
  - Pneumonia [Recovering/Resolving]
  - Dyspnoea [Recovering/Resolving]
  - Diabetes mellitus [Recovering/Resolving]
  - Blood pressure increased [Recovering/Resolving]
  - Muscular weakness [Recovering/Resolving]
  - Local swelling [Recovered/Resolved]
